FAERS Safety Report 21601294 (Version 3)
Quarter: 2022Q4

REPORT INFORMATION
  Report Type: Report from Study
  Country: CO (occurrence: CO)
  Receive Date: 20221116
  Receipt Date: 20221205
  Transmission Date: 20230113
  Serious: Yes (Other)
  Sender: FDA-Public Use
  Company Number: CO-002147023-NVSC2022CO211583

PATIENT
  Sex: Female

DRUGS (1)
  1. KISQALI [Suspect]
     Active Substance: RIBOCICLIB
     Indication: Hormone receptor positive HER2 negative breast cancer
     Dosage: 600 MG, QD
     Route: 048

REACTIONS (7)
  - Femur fracture [Unknown]
  - Abdominal discomfort [Unknown]
  - Accident [Unknown]
  - Underweight [Unknown]
  - Platelet count decreased [Unknown]
  - Nausea [Unknown]
  - Asthenia [Unknown]
